FAERS Safety Report 9270582 (Version 4)
Quarter: 2013Q2

REPORT INFORMATION
  Report Type: Spontaneous
  Country: BR (occurrence: BR)
  Receive Date: 20130503
  Receipt Date: 20130523
  Transmission Date: 20140414
  Serious: Yes (Other)
  Sender: FDA-Public Use
  Company Number: BR-PFIZER INC-2013134113

PATIENT
  Age: 71 Year
  Sex: Female

DRUGS (4)
  1. XALATAN [Suspect]
     Indication: GLAUCOMA
     Dosage: ONE DROP EACH EYE, UNK
     Route: 047
     Dates: start: 1983
  2. XALATAN [Suspect]
     Dosage: UNK
  3. CALCIUM [Concomitant]
  4. PURAN T4 [Concomitant]

REACTIONS (3)
  - Nephrolithiasis [Not Recovered/Not Resolved]
  - Cataract [Unknown]
  - Blood pressure fluctuation [Not Recovered/Not Resolved]
